FAERS Safety Report 4505518-9 (Version None)
Quarter: 2004Q4

REPORT INFORMATION
  Report Type: 
  Country: None (occurrence: None)
  Receive Date: 20041025
  Receipt Date: 20031029
  Transmission Date: 20050328
  Serious: Yes (Other)
  Sender: FDA-Public Use
  Company Number: US-JNJFOC-20031006449

PATIENT
  Age: 69 Year
  Sex: Male
  Weight: 73.4827 kg

DRUGS (2)
  1. REMICADE [Suspect]
     Indication: RHEUMATOID ARTHRITIS
     Dosage: INTRAVENOUS
     Route: 042
  2. STEROIDS (CORTICOSTEROID NOS) [Concomitant]

REACTIONS (2)
  - UPPER RESPIRATORY FUNGAL INFECTION [None]
  - WEIGHT DECREASED [None]
